FAERS Safety Report 8784559 (Version 1)
Quarter: 2012Q4

REPORT INFORMATION
  Report Type: Spontaneous
  Country: US (occurrence: None)
  Receive Date: 20120907
  Receipt Date: 20120907
  Transmission Date: 20130627
  Serious: Yes (Hospitalization)
  Sender: FDA-Public Use
  Company Number: None

PATIENT
  Age: 11 Year
  Sex: Female
  Weight: 35.4 kg

DRUGS (1)
  1. RUFINAMIDE [Suspect]
     Route: 048

REACTIONS (3)
  - Vomiting [None]
  - International normalised ratio increased [None]
  - Liver function test abnormal [None]
